FAERS Safety Report 7366453-4 (Version None)
Quarter: 2011Q1

REPORT INFORMATION
  Report Type: 
  Country: None (occurrence: None)
  Receive Date: 20110322
  Receipt Date: 20110314
  Transmission Date: 20110831
  Serious: Yes (Other)
  Sender: FDA-Public Use
  Company Number: GB-AMGEN-GBRSP2011014660

PATIENT
  Age: 75 Year
  Sex: Female

DRUGS (7)
  1. FERSAMAL                           /00023505/ [Concomitant]
     Dosage: UNK
  2. ENBREL [Suspect]
     Indication: PRODUCT USED FOR UNKNOWN INDICATION
     Dosage: 50 MG, WEEKLY
     Dates: start: 20101201
  3. OMEPRAZOLE [Concomitant]
     Dosage: 10 MG, UNK
  4. ARTHROTEC [Concomitant]
     Dosage: 75 UNK, UNK
  5. PREDNISOLONE [Concomitant]
     Dosage: 5 MG, UNK
  6. PLAQUENIL [Concomitant]
     Dosage: 200 MG, UNK
  7. CALCICHEW-D3 [Concomitant]
     Dosage: UNK

REACTIONS (2)
  - GAIT DISTURBANCE [None]
  - TREMOR [None]
